FAERS Safety Report 13803292 (Version 2)
Quarter: 2017Q3

REPORT INFORMATION
  Report Type: Spontaneous
  Country: FR (occurrence: FR)
  Receive Date: 20170728
  Receipt Date: 20170815
  Transmission Date: 20171127
  Serious: Yes (Hospitalization, Other)
  Sender: FDA-Public Use
  Company Number: FR-PFIZER INC-2017318652

PATIENT
  Age: 26 Year
  Sex: Male

DRUGS (6)
  1. COCAINE [Concomitant]
     Active Substance: COCAINE
     Dosage: UNK
     Route: 042
  2. HEROIN [Concomitant]
     Active Substance: DIAMORPHINE
     Dosage: UNK
     Route: 042
  3. CANNABIS [Concomitant]
     Active Substance: CANNABIS SATIVA SUBSP. INDICA TOP
     Dosage: 10 JOINTS, DAILY (10 JOINTS A DAY)
  4. HEROIN [Concomitant]
     Active Substance: DIAMORPHINE
     Dosage: UNK
     Route: 045
  5. XANAX [Suspect]
     Active Substance: ALPRAZOLAM
     Dosage: 5 UP TO 10 DOSAGE FORMS A DAY
     Route: 048
  6. COCAINE [Concomitant]
     Active Substance: COCAINE
     Dosage: UNK
     Route: 045

REACTIONS (6)
  - Drug dependence [Unknown]
  - Drug abuse [Unknown]
  - Withdrawal syndrome [Unknown]
  - Disease recurrence [Unknown]
  - Psychomotor hyperactivity [Unknown]
  - Aggression [Unknown]
